FAERS Safety Report 5921538-1 (Version None)
Quarter: 2008Q3

REPORT INFORMATION
  Report Type: 
  Country: None (occurrence: None)
  Receive Date: 20080909
  Receipt Date: 20070904
  Transmission Date: 20090109
  Serious: Yes (Death, Hospitalization, Other)
  Sender: FDA-Public Use
  Company Number: 163-20785-07090066

PATIENT
  Age: 3 Year
  Sex: Male
  Weight: 20.2 kg

DRUGS (8)
  1. THALOMID [Suspect]
     Indication: OLIGODENDROGLIOMA
     Dosage: 150 MG, QD, ORAL
     Route: 048
     Dates: start: 20070404
  2. CYTOXAN [Suspect]
     Indication: OLIGODENDROGLIOMA
     Dosage: 37.5 MG, QD
     Dates: start: 20070404
  3. FENOFIBRATE [Suspect]
     Indication: OLIGODENDROGLIOMA
     Dosage: 48 MG, QD
     Dates: start: 20070404
  4. CELEBREX [Suspect]
     Indication: OLIGODENDROGLIOMA
     Dosage: 100 MG, BID
     Dates: start: 20070404
  5. ETOPOSIDE [Suspect]
     Indication: OLIGODENDROGLIOMA
     Dosage: 20 MG, QD
     Dates: start: 20070404, end: 20070717
  6. TEMOZOLOMIDE [Concomitant]
  7. DILANTIN [Concomitant]
  8. DECADRON [Concomitant]

REACTIONS (8)
  - DISEASE PROGRESSION [None]
  - DYSPHAGIA [None]
  - DYSPNOEA [None]
  - HYPOXIA [None]
  - METASTASES TO NERVOUS SYSTEM [None]
  - PHYSICAL DISABILITY [None]
  - PNEUMONIA [None]
  - PYREXIA [None]
